FAERS Safety Report 20481691 (Version 2)
Quarter: 2022Q1

REPORT INFORMATION
  Report Type: Spontaneous
  Country: JP (occurrence: JP)
  Receive Date: 20220216
  Receipt Date: 20220307
  Transmission Date: 20220423
  Serious: Yes (Hospitalization)
  Sender: FDA-Public Use
  Company Number: JP-UCBSA-2022007948

PATIENT
  Age: 25 Year
  Sex: Female

DRUGS (1)
  1. CIMZIA [Suspect]
     Active Substance: CERTOLIZUMAB PEGOL
     Indication: Rheumatoid arthritis
     Dosage: UNK
     Route: 058
     Dates: start: 20220203

REACTIONS (6)
  - Nausea [Recovered/Resolved]
  - Hyperventilation [Recovered/Resolved]
  - Somatic symptom disorder [Recovered/Resolved]
  - Erythema [Recovered/Resolved]
  - Injection site pain [Unknown]
  - Rash [Unknown]

NARRATIVE: CASE EVENT DATE: 20220201
